FAERS Safety Report 25770094 (Version 2)
Quarter: 2025Q3

REPORT INFORMATION
  Report Type: Report from Study
  Country: US (occurrence: US)
  Receive Date: 20250907
  Receipt Date: 20250924
  Transmission Date: 20251020
  Serious: Yes (Other)
  Sender: ABBVIE
  Company Number: US-ABBVIE-6441998

PATIENT
  Sex: Male

DRUGS (1)
  1. SKYRIZI [Suspect]
     Active Substance: RISANKIZUMAB-RZAA
     Indication: Crohn^s disease
     Route: 058
     Dates: start: 202402

REACTIONS (6)
  - Coma [Recovering/Resolving]
  - Amnesia [Unknown]
  - Road traffic accident [Unknown]
  - Concussion [Recovering/Resolving]
  - Pneumothorax [Recovering/Resolving]
  - Rib fracture [Recovering/Resolving]
